FAERS Safety Report 6571288-6 (Version None)
Quarter: 2010Q1

REPORT INFORMATION
  Report Type: 
  Country: None (occurrence: None)
  Receive Date: 20100129
  Receipt Date: 20100118
  Transmission Date: 20100710
  Serious: Yes (Other)
  Sender: FDA-Public Use
  Company Number: 1000011403

PATIENT
  Age: 43 Year
  Sex: Male

DRUGS (4)
  1. ACAMPROSATE (ACAMPROSATE CALCIUM) (333 MILLIGRAM) [Suspect]
     Dosage: 6 DOSAGE FORMS (1 DOSAGE FORMS, 6 IN1 D), ORAL
     Route: 048
  2. DEROXAT [Suspect]
     Indication: ANHEDONIA
     Dosage: 1 DOSAGE FORMS 1 DOSAGE FORMS, 1 IN 1 D), ORAL
     Route: 048
     Dates: start: 20091114, end: 20091116
  3. SERESTA (10 MILLIGRAM, TABLETS) [Suspect]
     Dosage: 3 DOSAGE FORM (1 DOSAGE FORMS, 3 IN 1 D), ORAL
     Route: 048
  4. VITAMINE B1 B6 BAYER [Concomitant]

REACTIONS (1)
  - GASTROINTESTINAL DISORDER [None]
